FAERS Safety Report 23634835 (Version 3)
Quarter: 2024Q2

REPORT INFORMATION
  Report Type: Spontaneous
  Country: CA (occurrence: CA)
  Receive Date: 20240315
  Receipt Date: 20240510
  Transmission Date: 20240716
  Serious: Yes (Other)
  Sender: FDA-Public Use
  Company Number: CA-CELLTRION INC.-2024CA006278

PATIENT

DRUGS (4)
  1. INFLECTRA [Suspect]
     Active Substance: INFLIXIMAB-DYYB
     Indication: Colitis ulcerative
     Dosage: 5 MG/KG, INDUCTION WEEKS 0, 2, 6 MAINTENANCE Q 8 WEEKS (350 MG)
     Route: 042
     Dates: start: 20240115
  2. INFLECTRA [Suspect]
     Active Substance: INFLIXIMAB-DYYB
     Dosage: 5 MG/KG, INDUCTION WEEKS 0, 2, 6 MAINTENANCE Q 8 WEEKS
     Route: 042
     Dates: start: 20240222
  3. INFLECTRA [Suspect]
     Active Substance: INFLIXIMAB-DYYB
     Dosage: 350 MG, AFTER 1 WEEK AND 6 DAYS (INDUCTION WEEKS 0, 2, 6 MAINTENANCE Q 8 WEEKS)
     Route: 042
     Dates: start: 20240306, end: 20240306
  4. INFLECTRA [Suspect]
     Active Substance: INFLIXIMAB-DYYB
     Dosage: 350 MG, AFTER 4 WEEKS, (INDUCTION WEEKS 0, 2, 6 MAINTENANCE Q 8 WEEKS)
     Route: 042
     Dates: start: 20240403

REACTIONS (5)
  - Blood pressure increased [Not Recovered/Not Resolved]
  - Condition aggravated [Not Recovered/Not Resolved]
  - Pruritus [Not Recovered/Not Resolved]
  - Weight decreased [Not Recovered/Not Resolved]
  - Off label use [Unknown]

NARRATIVE: CASE EVENT DATE: 20240306
